FAERS Safety Report 19619395 (Version 1)
Quarter: 2021Q3

REPORT INFORMATION
  Report Type: Spontaneous
  Country: US (occurrence: US)
  Receive Date: 20210728
  Receipt Date: 20210728
  Transmission Date: 20211014
  Serious: No
  Sender: FDA-Public Use
  Company Number: US-ROCHE-2710013

PATIENT
  Age: 56 Year
  Sex: Male

DRUGS (1)
  1. XELODA [Suspect]
     Active Substance: CAPECITABINE
     Indication: GALLBLADDER CANCER
     Route: 048
     Dates: start: 202010

REACTIONS (6)
  - Off label use [Unknown]
  - Palmar-plantar erythrodysaesthesia syndrome [Unknown]
  - Hyperaesthesia [Unknown]
  - Fatigue [Unknown]
  - Dry skin [Unknown]
  - Skin texture abnormal [Unknown]

NARRATIVE: CASE EVENT DATE: 20201019
